FAERS Safety Report 13628772 (Version 1)
Quarter: 2017Q2

REPORT INFORMATION
  Report Type: Spontaneous
  Country: FR (occurrence: FR)
  Receive Date: 20170607
  Receipt Date: 20170607
  Transmission Date: 20170830
  Serious: Yes (Other)
  Sender: FDA-Public Use
  Company Number: FR-BAYER-2017-101549

PATIENT
  Age: 34 Year
  Sex: Female

DRUGS (1)
  1. MIRENA [Suspect]
     Active Substance: LEVONORGESTREL
     Dosage: 20 MCG/24HR, CONT
     Route: 015
     Dates: start: 20160301, end: 20170512

REACTIONS (5)
  - Loss of libido [Unknown]
  - Fluid retention [Unknown]
  - Weight increased [Unknown]
  - Depressed mood [Unknown]
  - Cyst [Unknown]

NARRATIVE: CASE EVENT DATE: 201606
